FAERS Safety Report 6925622 (Version 2)
Quarter: 2014Q2

REPORT INFORMATION
  Report Type: Report from Study
  Country: AU (occurrence: AU)
  Receive Date: 20090303
  Receipt Date: 20140402
  Transmission Date: 20141212
  Serious: Yes (Other)
  Sender: FDA-Public Use
  Company Number: PHHY2009AU05624

PATIENT
  Sex: Male

DRUGS (3)
  1. CLOZARIL [Suspect]
     Dosage: 375 MG, UNK
     Dates: start: 20070417, end: 20140217
  2. METRONIDAZOLE [Interacting]
     Indication: GASTROINTESTINAL DISORDER
     Dosage: 400 MG, TID
  3. CIPROFLOXACIN [Interacting]
     Indication: GASTROINTESTINAL DISORDER
     Dosage: 250 MG, BID

REACTIONS (5)
  - Electrocardiogram QT prolonged [Unknown]
  - Tachycardia [Unknown]
  - Cardiomyopathy [Unknown]
  - Gastrointestinal disorder [Unknown]
  - Drug interaction [Unknown]
